FAERS Safety Report 6507577-0 (Version None)
Quarter: 2009Q4

REPORT INFORMATION
  Report Type: 
  Country: None (occurrence: None)
  Receive Date: 20091216
  Receipt Date: 20091201
  Transmission Date: 20100525
  Serious: Yes (Death)
  Sender: FDA-Public Use
  Company Number: 034

PATIENT
  Age: 74 Year
  Sex: Female

DRUGS (4)
  1. FAZACLO ODT [Suspect]
     Indication: SCHIZOPHRENIA
     Dosage: 100MG PO DAILY
     Route: 048
     Dates: start: 20050921, end: 20060107
  2. NORVASC [Concomitant]
  3. RANITIDINE [Concomitant]
  4. METOPROLOL TARTRATE [Concomitant]

REACTIONS (1)
  - ACUTE MYOCARDIAL INFARCTION [None]
